FAERS Safety Report 11595880 (Version 5)
Quarter: 2016Q1

REPORT INFORMATION
  Report Type: Other
  Country: JP (occurrence: JP)
  Receive Date: 20151006
  Receipt Date: 20160215
  Transmission Date: 20160525
  Serious: Yes (Hospitalization, Other)
  Sender: FDA-Public Use
  Company Number: JP-ASTELLAS-2015JP019816

PATIENT
  Age: 95 Year
  Sex: Female
  Weight: 26 kg

DRUGS (2)
  1. SERMION                            /00396401/ [Concomitant]
     Indication: CEREBRAL INFARCTION
     Route: 048
  2. VESICARE [Suspect]
     Active Substance: SOLIFENACIN SUCCINATE
     Indication: HYPERTONIC BLADDER
     Route: 048
     Dates: start: 20150824, end: 20150928

REACTIONS (2)
  - Cardiac failure congestive [Recovered/Resolved]
  - Hyponatraemia [Recovered/Resolved]

NARRATIVE: CASE EVENT DATE: 20150916
